FAERS Safety Report 8493905-6 (Version None)
Quarter: 2012Q3

REPORT INFORMATION
  Report Type: 
  Country: None (occurrence: None)
  Receive Date: 20120708
  Receipt Date: 20120704
  Transmission Date: 20120928
  Serious: Yes (Death)
  Sender: FDA-Public Use
  Company Number: US-BAYER-2012-066546

PATIENT
  Age: 78 Year
  Sex: Female
  Weight: 80 kg

DRUGS (11)
  1. ALBUTEROL [Concomitant]
  2. DABIGATRAN [Suspect]
     Dosage: 150 MG, BID
  3. FUROSEMIDE [Concomitant]
  4. VITAMIN D [Concomitant]
  5. RAMIPRIL [Concomitant]
  6. IBANDRONATE SODIUM [Concomitant]
  7. FISH OIL [Concomitant]
  8. DOXEPIN [Concomitant]
  9. TIOTROPIUM [Concomitant]
  10. ASPIRIN [Suspect]
  11. PROPAFENONE HCL [Suspect]

REACTIONS (1)
  - SHOCK HAEMORRHAGIC [None]
